FAERS Safety Report 12922760 (Version 2)
Quarter: 2017Q1

REPORT INFORMATION
  Report Type: Spontaneous
  Country: BR (occurrence: BR)
  Receive Date: 20161108
  Receipt Date: 20170109
  Transmission Date: 20170428
  Serious: Yes (Other)
  Sender: FDA-Public Use
  Company Number: BR-ELI_LILLY_AND_COMPANY-BR201610009979

PATIENT
  Sex: Female

DRUGS (2)
  1. TRESIBA [Concomitant]
     Active Substance: INSULIN DEGLUDEC
     Dosage: UNK, UNKNOWN
     Route: 065
  2. TRULICITY [Suspect]
     Active Substance: DULAGLUTIDE
     Indication: TYPE 2 DIABETES MELLITUS
     Dosage: 1.5 MG, UNKNOWN
     Route: 065
     Dates: start: 2016

REACTIONS (8)
  - Blood bicarbonate decreased [Recovered/Resolved]
  - Abdominal pain [Recovered/Resolved]
  - Malaise [Recovered/Resolved]
  - Blood glucose increased [Recovered/Resolved]
  - Eructation [Recovered/Resolved]
  - Decreased appetite [Recovered/Resolved]
  - Blood pH decreased [Recovered/Resolved]
  - Haematemesis [Recovered/Resolved]

NARRATIVE: CASE EVENT DATE: 20161024
